FAERS Safety Report 7405735-4 (Version None)
Quarter: 2011Q2

REPORT INFORMATION
  Report Type: 
  Country: None (occurrence: None)
  Receive Date: 20110411
  Receipt Date: 20110401
  Transmission Date: 20111010
  Serious: Yes (Hospitalization)
  Sender: FDA-Public Use
  Company Number: US-AMGEN-USASP2011013631

PATIENT
  Age: 58 Year
  Sex: Female
  Weight: 79.365 kg

DRUGS (10)
  1. CELEXA [Concomitant]
     Dosage: UNK
     Dates: start: 20090101
  2. ASPIRIN [Concomitant]
     Dosage: 81 MG, UNK
  3. ENBREL [Suspect]
     Dosage: 50 MG, 2 TIMES/WK
     Dates: start: 20101006, end: 20110122
  4. ZANTAC                             /00550801/ [Concomitant]
     Dosage: UNK
     Dates: start: 20091001
  5. ZOCOR [Concomitant]
     Dosage: UNK
     Dates: start: 20091001
  6. ENBREL [Suspect]
     Indication: PSORIASIS
     Dosage: 50 MG, 2 TIMES/WK
     Route: 058
     Dates: start: 20080313, end: 20081107
  7. ENBREL [Suspect]
     Dosage: 50 MG, 2 TIMES/WK
     Dates: start: 20091028, end: 20100510
  8. ANTIDEPRESSANTS [Concomitant]
  9. ANTIHYPERTENSIVES [Concomitant]
  10. LISINOPRIL AND HYDROCHLOROTHIAZIDE [Concomitant]

REACTIONS (3)
  - PSORIASIS [None]
  - SPINAL FRACTURE [None]
  - GRAND MAL CONVULSION [None]
